FAERS Safety Report 22524667 (Version 1)
Quarter: 2023Q2

REPORT INFORMATION
  Report Type: Spontaneous
  Country: US (occurrence: None)
  Receive Date: 20230605
  Receipt Date: 20230605
  Transmission Date: 20230722
  Serious: Yes (Other)
  Sender: FDA-Public Use
  Company Number: None

PATIENT
  Age: 28 Year
  Sex: Female

DRUGS (1)
  1. APLISOL [Suspect]
     Active Substance: TUBERCULIN PURIFIED PROTEIN DERIVATIVE
     Dosage: FREQUENCY : AS NEEDED;?
     Route: 023
     Dates: start: 20230530, end: 20230530

REACTIONS (3)
  - Eye swelling [None]
  - Rash [None]
  - Wheezing [None]

NARRATIVE: CASE EVENT DATE: 20230531
